FAERS Safety Report 6805091-6 (Version None)
Quarter: 2010Q2

REPORT INFORMATION
  Report Type: 
  Country: None (occurrence: None)
  Receive Date: 20100628
  Receipt Date: 20070823
  Transmission Date: 20101027
  Serious: No
  Sender: FDA-Public Use
  Company Number: US-PFIZER INC-2007070688

PATIENT
  Sex: Male
  Weight: 88.6 kg

DRUGS (3)
  1. GEODON [Suspect]
     Indication: MANIA
     Route: 048
     Dates: start: 20070819, end: 20070819
  2. ZANTAC [Concomitant]
  3. VITAMINS [Concomitant]

REACTIONS (2)
  - FATIGUE [None]
  - INSOMNIA [None]
